FAERS Safety Report 22524935 (Version 5)
Quarter: 2023Q4

REPORT INFORMATION
  Report Type: Spontaneous
  Country: GR (occurrence: GR)
  Receive Date: 20230606
  Receipt Date: 20231013
  Transmission Date: 20240109
  Serious: No
  Sender: FDA-Public Use
  Company Number: GR-PFIZER INC-PV202300097690

PATIENT
  Age: 10 Year
  Sex: Female
  Weight: 28 kg

DRUGS (1)
  1. GENOTROPIN [Suspect]
     Active Substance: SOMATROPIN
     Dosage: 5.5 MG, WEEKLY
     Route: 058
     Dates: start: 202304

REACTIONS (3)
  - Device difficult to use [Unknown]
  - Device physical property issue [Unknown]
  - Device breakage [Unknown]
